FAERS Safety Report 14802103 (Version 1)
Quarter: 2018Q2

REPORT INFORMATION
  Report Type: Spontaneous
  Country: US (occurrence: US)
  Receive Date: 20180424
  Receipt Date: 20180424
  Transmission Date: 20180711
  Serious: Yes (Other)
  Sender: FDA-Public Use
  Company Number: US-NAPPMUNDI-USA-2017-0142110

PATIENT

DRUGS (2)
  1. OXYCODONE HYDROCHLORIDE (SIMILAR TO NDA 22-272) [Suspect]
     Active Substance: OXYCODONE HYDROCHLORIDE
     Dosage: 5 MG, DAILY
     Route: 048
  2. OXYCODONE HYDROCHLORIDE (SIMILAR TO NDA 22-272) [Suspect]
     Active Substance: OXYCODONE HYDROCHLORIDE
     Indication: PAIN
     Dosage: 5 MG, 2-3 TIMES A DAY
     Route: 048
     Dates: start: 2010

REACTIONS (7)
  - Anxiety [Unknown]
  - Malaise [Unknown]
  - Drug dependence [Unknown]
  - Formication [Unknown]
  - Unevaluable event [Unknown]
  - Heart rate increased [Unknown]
  - Hyperhidrosis [Unknown]
